FAERS Safety Report 14991398 (Version 1)
Quarter: 2018Q2

REPORT INFORMATION
  Report Type: Spontaneous
  Country: US (occurrence: US)
  Receive Date: 20180517
  Receipt Date: 20180517
  Transmission Date: 20180711
  Serious: Yes (Hospitalization)
  Sender: FDA-Public Use
  Company Number: None

PATIENT
  Age: 61 Year
  Sex: Female
  Weight: 119.3 kg

DRUGS (9)
  1. AMLODIPINE [Concomitant]
     Active Substance: AMLODIPINE BESYLATE
  2. LISINOPRIL. [Concomitant]
     Active Substance: LISINOPRIL
  3. METFORMIN [Concomitant]
     Active Substance: METFORMIN HYDROCHLORIDE
  4. AMLODIPINE [Concomitant]
     Active Substance: AMLODIPINE BESYLATE
  5. EVEROLIMUS/PLACEBO [Concomitant]
  6. ASPIRIN. [Suspect]
     Active Substance: ASPIRIN
     Dates: end: 20180427
  7. LETRAZOLE [Concomitant]
     Active Substance: LETROZOLE
  8. PRAVASTATIN. [Concomitant]
     Active Substance: PRAVASTATIN
  9. CITALOPRAM [Concomitant]
     Active Substance: CITALOPRAM HYDROBROMIDE

REACTIONS (9)
  - Urinary tract infection [None]
  - Abdominal pain [None]
  - Gallbladder abscess [None]
  - Haemoglobin decreased [None]
  - Klebsiella test positive [None]
  - Culture urine positive [None]
  - Pyrexia [None]
  - Chills [None]
  - Gallbladder perforation [None]

NARRATIVE: CASE EVENT DATE: 20180427
